FAERS Safety Report 12285044 (Version 1)
Quarter: 2016Q2

REPORT INFORMATION
  Report Type: Spontaneous
  Country: US (occurrence: None)
  Receive Date: 20160419
  Receipt Date: 20160419
  Transmission Date: 20160815
  Serious: Yes (Other)
  Sender: FDA-Public Use
  Company Number: None

PATIENT
  Age: 56 Year
  Sex: Female

DRUGS (1)
  1. ESCITALOPRAM OXALATE, 20MG [Suspect]
     Active Substance: ESCITALOPRAM OXALATE
     Indication: ANXIETY DISORDER
     Route: 048
     Dates: start: 20160309, end: 20160418

REACTIONS (3)
  - Insomnia [None]
  - Nightmare [None]
  - Rash [None]

NARRATIVE: CASE EVENT DATE: 20160309
